FAERS Safety Report 13895817 (Version 2)
Quarter: 2017Q3

REPORT INFORMATION
  Report Type: Report from Study
  Country: GB (occurrence: GB)
  Receive Date: 20170823
  Receipt Date: 20170906
  Transmission Date: 20171127
  Serious: Yes (Other)
  Sender: FDA-Public Use
  Company Number: PHFR2017GB006911

PATIENT
  Sex: Female

DRUGS (1)
  1. GILENYA [Suspect]
     Active Substance: FINGOLIMOD HYDROCHLORIDE
     Indication: MULTIPLE SCLEROSIS
     Dosage: 0.5 MG, QD
     Route: 065
     Dates: start: 20151120

REACTIONS (15)
  - Tremor [Unknown]
  - Muscle spasms [Unknown]
  - Syncope [Unknown]
  - Stress [Unknown]
  - Ophthalmoplegia [Unknown]
  - Bladder disorder [Unknown]
  - Depressed mood [Unknown]
  - Gastrointestinal disorder [Unknown]
  - Malaise [Unknown]
  - Dizziness [Unknown]
  - Crying [Unknown]
  - Grip strength decreased [Unknown]
  - Sensory loss [Unknown]
  - Fall [Unknown]
  - Vision blurred [Unknown]
